FAERS Safety Report 13328742 (Version 1)
Quarter: 2017Q1

REPORT INFORMATION
  Report Type: Spontaneous
  Country: US (occurrence: US)
  Receive Date: 20170311
  Receipt Date: 20170311
  Transmission Date: 20170428
  Serious: Yes (Other)
  Sender: FDA-Public Use
  Company Number: None

PATIENT
  Age: 32 Year
  Sex: Female
  Weight: 53.1 kg

DRUGS (1)
  1. TAMSULOSIN SUB FOR FLOMAX [Suspect]
     Active Substance: TAMSULOSIN HYDROCHLORIDE
     Indication: NEPHROLITHIASIS
     Dosage: ?          QUANTITY:1 CAPSULE(S);?
     Route: 048
     Dates: start: 20170222, end: 20170223

REACTIONS (4)
  - Heart rate increased [None]
  - Pruritus [None]
  - Pain [None]
  - Skin discolouration [None]

NARRATIVE: CASE EVENT DATE: 20170222
